FAERS Safety Report 10555744 (Version 1)
Quarter: 2014Q4

REPORT INFORMATION
  Report Type: Spontaneous
  Country: US (occurrence: US)
  Receive Date: 20141030
  Receipt Date: 20141030
  Transmission Date: 20150529
  Serious: Yes (Other)
  Sender: FDA-Public Use
  Company Number: PHEH2014US021502

PATIENT
  Sex: Male

DRUGS (2)
  1. XALKORI [Concomitant]
     Active Substance: CRIZOTINIB
     Indication: PRODUCT USED FOR UNKNOWN INDICATION
     Dosage: UNK
     Route: 065
  2. ZYKADIA [Suspect]
     Active Substance: CERITINIB
     Indication: PRODUCT USED FOR UNKNOWN INDICATION
     Dosage: 5 DF, DAILY
     Route: 048
     Dates: start: 20141023

REACTIONS (8)
  - Bronchitis [Unknown]
  - Abdominal discomfort [Unknown]
  - Malaise [Unknown]
  - Productive cough [Unknown]
  - Muscle spasms [Unknown]
  - Cough [Unknown]
  - Vomiting [Unknown]
  - Nausea [Unknown]
